FAERS Safety Report 10395607 (Version 1)
Quarter: 2014Q3

REPORT INFORMATION
  Report Type: Spontaneous
  Country: CA (occurrence: CA)
  Receive Date: 20140820
  Receipt Date: 20140820
  Transmission Date: 20150326
  Serious: Yes (Hospitalization)
  Sender: FDA-Public Use
  Company Number: CA-BAYER-2014-119255

PATIENT
  Age: 53 Year
  Sex: Male
  Weight: 91 kg

DRUGS (11)
  1. METOPROLOL [Suspect]
     Active Substance: METOPROLOL
  2. LISINOPRIL. [Concomitant]
     Active Substance: LISINOPRIL
  3. ASA [Concomitant]
     Active Substance: ASPIRIN
  4. DIAMICRON [Concomitant]
     Active Substance: GLICLAZIDE
  5. SUTENT [Suspect]
     Active Substance: SUNITINIB MALATE
     Dosage: 50 MG, QD
  6. AVALIDE [Concomitant]
     Active Substance: HYDROCHLOROTHIAZIDE\IRBESARTAN
  7. GLICLAZIDE [Suspect]
     Active Substance: GLICLAZIDE
  8. CADUET [Concomitant]
     Active Substance: AMLODIPINE BESYLATE\ATORVASTATIN CALCIUM
  9. LEVEMIR [Suspect]
     Active Substance: INSULIN DETEMIR
  10. NEXAVAR [Suspect]
     Active Substance: SORAFENIB
     Dosage: 400 MG, BID
  11. JANUVIA [Suspect]
     Active Substance: SITAGLIPTIN PHOSPHATE

REACTIONS (4)
  - Blood creatinine increased [Recovered/Resolved]
  - Hypoglycaemia [Recovered/Resolved]
  - Metabolic acidosis [Recovered/Resolved]
  - Vomiting projectile [Recovered/Resolved]
